FAERS Safety Report 6964020-5 (Version None)
Quarter: 2010Q3

REPORT INFORMATION
  Report Type: 
  Country: None (occurrence: None)
  Receive Date: 20100902
  Receipt Date: 20100902
  Transmission Date: 20110219
  Serious: Yes (Life-Threatening, Other)
  Sender: FDA-Public Use
  Company Number: None

PATIENT
  Age: 40 Year
  Sex: Female
  Weight: 49.8957 kg

DRUGS (1)
  1. SUBOXONE [Suspect]
     Indication: DRUG DEPENDENCE
     Dosage: 4MG 1X PER DAY SL
     Route: 060
     Dates: start: 20080501, end: 20100615

REACTIONS (5)
  - CHEST DISCOMFORT [None]
  - DRUG WITHDRAWAL SYNDROME [None]
  - DYSPNOEA [None]
  - FATIGUE [None]
  - IMPAIRED WORK ABILITY [None]
